FAERS Safety Report 6882020-0 (Version None)
Quarter: 2010Q3

REPORT INFORMATION
  Report Type: 
  Country: None (occurrence: None)
  Receive Date: 20100728
  Receipt Date: 20100728
  Transmission Date: 20110219
  Serious: Yes (Death)
  Sender: FDA-Public Use
  Company Number: None

PATIENT
  Sex: Female
  Weight: 68.7 kg

DRUGS (5)
  1. TEMOZOLOMIDE [Suspect]
     Indication: GLIOBLASTOMA MULTIFORME
     Dosage: 135 MG DAILY PO
     Route: 048
     Dates: start: 20100607, end: 20100630
  2. PACLITAXEL [Suspect]
     Indication: GLIOBLASTOMA MULTIFORME
     Dosage: 73 MG WKLY X 4 DOSES IV
     Route: 042
     Dates: start: 20100607
  3. PACLITAXEL [Suspect]
     Indication: GLIOBLASTOMA MULTIFORME
     Dosage: 73 MG WKLY X 4 DOSES IV
     Route: 042
     Dates: start: 20100614
  4. PACLITAXEL [Suspect]
     Indication: GLIOBLASTOMA MULTIFORME
     Dosage: 73 MG WKLY X 4 DOSES IV
     Route: 042
     Dates: start: 20100621
  5. PACLITAXEL [Suspect]
     Indication: GLIOBLASTOMA MULTIFORME
     Dosage: 73 MG WKLY X 4 DOSES IV
     Route: 042
     Dates: start: 20100628

REACTIONS (7)
  - CLOSTRIDIUM DIFFICILE COLITIS [None]
  - DECREASED APPETITE [None]
  - FAILURE TO THRIVE [None]
  - FATIGUE [None]
  - GENERAL PHYSICAL HEALTH DETERIORATION [None]
  - PANCYTOPENIA [None]
  - THROMBOCYTOPENIA [None]
